FAERS Safety Report 4391817-0 (Version None)
Quarter: 2004Q3

REPORT INFORMATION
  Report Type: 
  Country: None (occurrence: None)
  Receive Date: 20040701
  Receipt Date: 20040611
  Transmission Date: 20050211
  Serious: Yes (Other)
  Sender: FDA-Public Use
  Company Number: USA040669986

PATIENT
  Age: 71 Year
  Sex: Female

DRUGS (3)
  1. FORTEO [Suspect]
     Indication: OSTEOPOROSIS
     Dates: start: 20040301
  2. FOSAMAX [Concomitant]
  3. TAMOXIFEN [Concomitant]

REACTIONS (3)
  - BILIARY NEOPLASM [None]
  - PHARMACEUTICAL PRODUCT COMPLAINT [None]
  - VITAMIN D INCREASED [None]
